FAERS Safety Report 9120218 (Version 1)
Quarter: 2013Q1

REPORT INFORMATION
  Report Type: Report from Study
  Country: DE (occurrence: DE)
  Receive Date: 20130226
  Receipt Date: 20130226
  Transmission Date: 20140127
  Serious: Yes (Hospitalization)
  Sender: FDA-Public Use
  Company Number: DE-BRISTOL-MYERS SQUIBB COMPANY-17392655

PATIENT
  Age: 45 Year
  Sex: Female
  Weight: 56 kg

DRUGS (3)
  1. PACLITAXEL [Suspect]
     Indication: BREAST CANCER
     Dosage: CYCLE 5 DAY 8
     Route: 042
     Dates: start: 20110513, end: 20110905
  2. BEVACIZUMAB [Suspect]
     Indication: BREAST CANCER
     Dosage: CYCLE 5 DAY1?LAST DOSE 22AUG11
     Route: 042
     Dates: start: 20110513, end: 20110905
  3. CAPECITABINE [Suspect]
     Indication: BREAST CANCER
     Dosage: LAST DOSE 1SP11
     Route: 048
     Dates: start: 20110513, end: 20110905

REACTIONS (1)
  - Palmar-plantar erythrodysaesthesia syndrome [Recovered/Resolved]
